FAERS Safety Report 7621123-X (Version None)
Quarter: 2011Q3

REPORT INFORMATION
  Report Type: 
  Country: None (occurrence: None)
  Receive Date: 20110719
  Receipt Date: 20110711
  Transmission Date: 20111222
  Serious: Yes (Other)
  Sender: FDA-Public Use
  Company Number: US-ABBOTT-11P-163-0733164-00

PATIENT
  Sex: Female
  Weight: 72.64 kg

DRUGS (3)
  1. LUPRON DEPOT [Suspect]
     Indication: UTERINE LEIOMYOMA
     Dates: start: 20110301
  2. SYNTHROID [Concomitant]
     Indication: HYPOTHYROIDISM
  3. LUPRON DEPOT [Suspect]
     Dates: start: 20110201, end: 20110201

REACTIONS (9)
  - GRANULOMA [None]
  - INFLAMMATION [None]
  - OSTEOARTHRITIS [None]
  - MUSCULOSKELETAL PAIN [None]
  - NECROSIS [None]
  - HYPERSENSITIVITY [None]
  - INJECTION SITE MASS [None]
  - MASS [None]
  - PAIN [None]
